FAERS Safety Report 13921601 (Version 1)
Quarter: 2017Q3

REPORT INFORMATION
  Report Type: Report from Study
  Country: US (occurrence: US)
  Receive Date: 20170830
  Receipt Date: 20170830
  Transmission Date: 20171127
  Serious: Yes (Hospitalization, Other)
  Sender: FDA-Public Use
  Company Number: US-SA-2016SA230153

PATIENT
  Age: 35 Year
  Sex: Female
  Weight: 95.25 kg

DRUGS (10)
  1. SOLU-MEDROL [Suspect]
     Active Substance: METHYLPREDNISOLONE SODIUM SUCCINATE
     Indication: MULTIPLE SCLEROSIS RELAPSE
     Route: 065
     Dates: start: 20161212, end: 20161216
  2. ZANTAC [Concomitant]
     Active Substance: RANITIDINE HYDROCHLORIDE
     Indication: HYPERSENSITIVITY
     Dates: start: 20161212
  3. ACYCLOVIR. [Concomitant]
     Active Substance: ACYCLOVIR
  4. LEMTRADA [Suspect]
     Active Substance: ALEMTUZUMAB
     Indication: RELAPSING-REMITTING MULTIPLE SCLEROSIS
     Route: 041
     Dates: start: 20161212, end: 20161216
  5. SOLU-MEDROL [Suspect]
     Active Substance: METHYLPREDNISOLONE SODIUM SUCCINATE
     Indication: HYPERSENSITIVITY
     Route: 065
     Dates: start: 20161212, end: 20161216
  6. ZOFRAN [Concomitant]
     Active Substance: ONDANSETRON HYDROCHLORIDE
     Indication: NAUSEA
     Dates: start: 20161212
  7. BENADRYL [Concomitant]
     Active Substance: DIPHENHYDRAMINE HYDROCHLORIDE
     Indication: HYPERSENSITIVITY
     Route: 048
     Dates: start: 20161212
  8. ADDERALL XR [Concomitant]
     Active Substance: AMPHETAMINE ASPARTATE\AMPHETAMINE SULFATE\DEXTROAMPHETAMINE SACCHARATE\DEXTROAMPHETAMINE SULFATE
  9. TYLENOL [Concomitant]
     Active Substance: ACETAMINOPHEN
     Route: 042
     Dates: start: 20161212, end: 20161216
  10. NORCO [Concomitant]
     Active Substance: ACETAMINOPHEN\HYDROCODONE BITARTRATE

REACTIONS (18)
  - Chest pain [Recovered/Resolved]
  - Back pain [Recovered/Resolved]
  - Band sensation [Recovered/Resolved]
  - Muscle spasticity [Unknown]
  - Pain in extremity [Recovered/Resolved]
  - Herpes zoster [Not Recovered/Not Resolved]
  - Dyspnoea [Recovered/Resolved]
  - Weight increased [Recovered/Resolved]
  - Vein rupture [Unknown]
  - Fatigue [Unknown]
  - Heart rate decreased [Recovered/Resolved]
  - Hypotension [Unknown]
  - Blood pressure increased [Not Recovered/Not Resolved]
  - Blood urea abnormal [Not Recovered/Not Resolved]
  - Head discomfort [Recovered/Resolved]
  - Headache [Unknown]
  - Blood creatinine abnormal [Not Recovered/Not Resolved]
  - Headache [Unknown]

NARRATIVE: CASE EVENT DATE: 201612
